FAERS Safety Report 20171269 (Version 1)
Quarter: 2021Q4

REPORT INFORMATION
  Report Type: Spontaneous
  Country: US (occurrence: None)
  Receive Date: 20211210
  Receipt Date: 20211210
  Transmission Date: 20220303
  Serious: Yes (Life-Threatening, Disabling)
  Sender: FDA-Public Use
  Company Number: None

PATIENT
  Age: 67 Year
  Sex: Female
  Weight: 67.59 kg

DRUGS (2)
  1. LEVAQUIN [Suspect]
     Active Substance: LEVOFLOXACIN
     Dosage: FREQUENCY : DAILY;?
     Route: 048
     Dates: start: 20190723, end: 20190801
  2. UNSPECIFIED INGREDIENT [Concomitant]
     Active Substance: UNSPECIFIED INGREDIENT

REACTIONS (21)
  - Rash [None]
  - Pain [None]
  - Tendonitis [None]
  - Muscle injury [None]
  - Tendon rupture [None]
  - Neuropathy peripheral [None]
  - Asthenia [None]
  - Bone neoplasm [None]
  - Arthralgia [None]
  - Myalgia [None]
  - Gait disturbance [None]
  - Musculoskeletal disorder [None]
  - Pain in extremity [None]
  - Arthralgia [None]
  - Burning sensation [None]
  - Paraesthesia [None]
  - Pain of skin [None]
  - Bone pain [None]
  - Gastrointestinal inflammation [None]
  - Diarrhoea [None]
  - Abdominal discomfort [None]

NARRATIVE: CASE EVENT DATE: 20190723
